FAERS Safety Report 16055542 (Version 1)
Quarter: 2019Q1

REPORT INFORMATION
  Report Type: Spontaneous
  Country: CN (occurrence: CN)
  Receive Date: 20190311
  Receipt Date: 20190311
  Transmission Date: 20190418
  Serious: Yes (Hospitalization)
  Sender: FDA-Public Use
  Company Number: CN-BAXTER-2019BAX004687

PATIENT
  Age: 44 Year
  Sex: Female
  Weight: 59 kg

DRUGS (16)
  1. 0.9% SODIUM CHLORIDE INJECTION [Suspect]
     Active Substance: SODIUM CHLORIDE
     Dosage: VINDESINE 2 MG + 0.9 % SODIUM CHLORIDE 20 ML ON DAY 1
     Route: 042
     Dates: start: 20180901, end: 20180901
  2. 0.9% SODIUM CHLORIDE INJECTION [Suspect]
     Active Substance: SODIUM CHLORIDE
     Dosage: ETOPOSIDE 70 MG + EPIRUBICIN 10 MG + 0.9 % SODIUM CHLORIDE 500 ML ON DAY 4
     Route: 041
     Dates: start: 20180904, end: 20180904
  3. ETOPOSIDE. [Suspect]
     Active Substance: ETOPOSIDE
     Dosage: ETOPOSIDE + EPIRUBICIN + 0.9 % SODIUM CHLORIDE , DOSE RE-INTRODUCED
     Route: 041
  4. PHARMORUBICIN [Suspect]
     Active Substance: EPIRUBICIN
     Indication: LYMPHOMA
     Dosage: ETOPOSIDE 70 MG + EPIRUBICIN 20 MG + 0.9 % SODIUM CHLORIDE 500 ML FROM DAY1 TO DAY 3
     Route: 041
     Dates: start: 20180901, end: 20180903
  5. PHARMORUBICIN [Suspect]
     Active Substance: EPIRUBICIN
     Dosage: ETOPOSIDE + EPIRUBICIN + 0.9 % SODIUM CHLORIDE , DOSE RE-INTRODUCED
     Route: 041
  6. VINDESINE SULFATE [Suspect]
     Active Substance: VINDESINE SULFATE
     Dosage: VINDESINE + 0.9 % SODIUM CHLORIDE, DOSE RE-INTRODUCED
     Route: 042
  7. 0.9% SODIUM CHLORIDE INJECTION [Suspect]
     Active Substance: SODIUM CHLORIDE
     Dosage: DOSE RE-INTRODUCED, ETOPOSIDE + EPIRUBICIN + 0.9% SODIUM CHLORIDE
     Route: 041
  8. PHARMORUBICIN [Suspect]
     Active Substance: EPIRUBICIN
     Dosage: ETOPOSIDE 70 MG + EPIRUBICIN 10 MG + 0.9 % SODIUM CHLORIDE 500 ML ON DAY 4
     Route: 041
     Dates: start: 20180904, end: 20180904
  9. ENDOXAN [Suspect]
     Active Substance: CYCLOPHOSPHAMIDE
     Indication: LYMPHOMA
     Dosage: DOSAGE FORM: INJECTION, CYCLOPHOSPHAMIDE 1 G + 0.9 % SODIUM CHLORIDE 80 ML ON DAY 5
     Route: 042
     Dates: start: 20180905, end: 20180905
  10. ETOPOSIDE. [Suspect]
     Active Substance: ETOPOSIDE
     Dosage: ETOPOSIDE 70 MG + EPIRUBICIN 10 MG + 0.9 % SODIUM CHLORIDE 500 ML ON DAY 4
     Route: 041
     Dates: start: 20180904, end: 20180904
  11. VINDESINE SULFATE [Suspect]
     Active Substance: VINDESINE SULFATE
     Indication: LYMPHOMA
     Dosage: VINDESINE 2 MG + 0.9 % SODIUM CHLORIDE 20 ML ON DAY 1
     Route: 042
     Dates: start: 20180901, end: 20180901
  12. ENDOXAN [Suspect]
     Active Substance: CYCLOPHOSPHAMIDE
     Dosage: CYCLOPHOSPHAMIDE + 0.9 % SODIUM CHLORIDE, DOSE RE-INTRODUCED, INJECTION
     Route: 042
  13. 0.9% SODIUM CHLORIDE INJECTION [Suspect]
     Active Substance: SODIUM CHLORIDE
     Indication: MEDICATION DILUTION
     Dosage: ETOPOSIDE 70 MG + EPIRUBICIN 20 MG + 0.9 % SODIUM CHLORIDE 500 ML FROM DAY1 TO DAY 3
     Route: 041
     Dates: start: 20180901, end: 20180903
  14. 0.9% SODIUM CHLORIDE INJECTION [Suspect]
     Active Substance: SODIUM CHLORIDE
     Dosage: CYCLOPHOSPHAMIDE 1G + 0.9 % SODIUM CHLORIDE 80 ML DAY 5
     Route: 042
     Dates: start: 20180905, end: 20180905
  15. 0.9% SODIUM CHLORIDE INJECTION [Suspect]
     Active Substance: SODIUM CHLORIDE
     Dosage: DOSE RE-INTRODUCED, VINDESINE + CYCLOPHOSPHAMIDE + 0.9% SODIUM CHLORIDE
     Route: 042
  16. ETOPOSIDE. [Suspect]
     Active Substance: ETOPOSIDE
     Indication: LYMPHOMA
     Dosage: ETOPOSIDE 70 MG + EPIRUBICIN 20 MG + 0.9 % SODIUM CHLORIDE 500 ML FROM DAY1 TO DAY 3
     Route: 041
     Dates: start: 20180901, end: 20180903

REACTIONS (1)
  - Bone marrow failure [Recovering/Resolving]

NARRATIVE: CASE EVENT DATE: 20180911
